FAERS Safety Report 4657018-3 (Version None)
Quarter: 2005Q2

REPORT INFORMATION
  Report Type: 
  Country: None (occurrence: None)
  Receive Date: 20050408
  Receipt Date: 20041217
  Transmission Date: 20051028
  Serious: No
  Sender: FDA-Public Use
  Company Number: 230238M04USA

PATIENT
  Age: 41 Year
  Sex: Male
  Weight: 62.5964 kg

DRUGS (1)
  1. REBIF [Suspect]
     Indication: MULTIPLE SCLEROSIS
     Dosage: 44 MCG, 3 IN 1 WEEKS, SUBCUTANEOUS
     Route: 058
     Dates: start: 20040501

REACTIONS (4)
  - ANGER [None]
  - IRRITABILITY [None]
  - PERSONALITY CHANGE [None]
  - WEIGHT DECREASED [None]
